FAERS Safety Report 8711493 (Version 2)
Quarter: 2015Q1

REPORT INFORMATION
  Report Type: Report from Study
  Country: US (occurrence: US)
  Receive Date: 20120807
  Receipt Date: 20150128
  Transmission Date: 20150721
  Serious: Yes (Other)
  Sender: FDA-Public Use
  Company Number: US-ROCHE-1098184

PATIENT
  Sex: Female
  Weight: 103.97 kg

DRUGS (15)
  1. XOLAIR [Suspect]
     Active Substance: OMALIZUMAB
     Indication: SEASONAL ALLERGY
     Route: 058
     Dates: start: 2005
  2. NASACORT [Concomitant]
     Active Substance: TRIAMCINOLONE ACETONIDE
  3. ADVAIR HFA [Concomitant]
     Active Substance: FLUTICASONE PROPIONATE\SALMETEROL XINAFOATE
     Dosage: 500/50 PUFF
     Route: 065
  4. ALLERGY SHOT [Concomitant]
     Active Substance: UNSPECIFIED INGREDIENT
  5. PREDNISONE. [Concomitant]
     Active Substance: PREDNISONE
  6. ADVAIR HFA [Concomitant]
     Active Substance: FLUTICASONE PROPIONATE\SALMETEROL XINAFOATE
     Dosage: 250
     Route: 065
  7. XOLAIR [Suspect]
     Active Substance: OMALIZUMAB
     Indication: ASTHMA
     Route: 058
     Dates: start: 20040213, end: 200504
  8. ALBUTEROL. [Concomitant]
     Active Substance: ALBUTEROL
     Dosage: PRN, INHALER
     Route: 065
  9. RANITIDINE [Concomitant]
     Active Substance: RANITIDINE\RANITIDINE HYDROCHLORIDE
     Route: 065
  10. ALLEGRA [Concomitant]
     Active Substance: FEXOFENADINE HYDROCHLORIDE
     Dosage: AS NEEDED
     Route: 065
  11. PREVACID [Concomitant]
     Active Substance: LANSOPRAZOLE
     Route: 065
  12. HCTZ [Concomitant]
     Active Substance: HYDROCHLOROTHIAZIDE
  13. NORVASC [Concomitant]
     Active Substance: AMLODIPINE BESYLATE
  14. PHENERGAN [Concomitant]
     Active Substance: PROMETHAZINE HYDROCHLORIDE
  15. ACCOLATE [Concomitant]
     Active Substance: ZAFIRLUKAST

REACTIONS (13)
  - Rhinitis allergic [Unknown]
  - Wheezing [Unknown]
  - Dacryostenosis acquired [Unknown]
  - Headache [Unknown]
  - Pain [Unknown]
  - Ear pruritus [Unknown]
  - Asphyxia [Unknown]
  - Nasal pruritus [Unknown]
  - Asthma [Unknown]
  - Gastrooesophageal reflux disease [Unknown]
  - Dyspnoea [Unknown]
  - Throat irritation [Unknown]
  - Lacrimation increased [Unknown]
